FAERS Safety Report 19427883 (Version 1)
Quarter: 2021Q2

REPORT INFORMATION
  Report Type: Spontaneous
  Country: US (occurrence: US)
  Receive Date: 20210616
  Receipt Date: 20210616
  Transmission Date: 20210717
  Serious: No
  Sender: FDA-Public Use
  Company Number: US-ROCHE-2798206

PATIENT
  Age: 43 Year
  Sex: Female
  Weight: 64.92 kg

DRUGS (2)
  1. ACTEMRA [Suspect]
     Active Substance: TOCILIZUMAB
     Indication: STILL^S DISEASE
     Route: 042
     Dates: start: 202002
  2. PREDNISONE. [Concomitant]
     Active Substance: PREDNISONE
     Indication: STILL^S DISEASE
     Route: 048
     Dates: start: 201811

REACTIONS (8)
  - Dyspnoea [Unknown]
  - Vitamin D decreased [Unknown]
  - Malaise [Recovering/Resolving]
  - Fatigue [Unknown]
  - Arthralgia [Unknown]
  - Off label use [Unknown]
  - Still^s disease [Not Recovered/Not Resolved]
  - Muscular weakness [Unknown]

NARRATIVE: CASE EVENT DATE: 202011
